FAERS Safety Report 18807271 (Version 1)
Quarter: 2021Q1

REPORT INFORMATION
  Report Type: Spontaneous
  Country: US (occurrence: US)
  Receive Date: 20210128
  Receipt Date: 20210128
  Transmission Date: 20210419
  Serious: Yes (Hospitalization, Other)
  Sender: FDA-Public Use
  Company Number: US-AUROBINDO-AUR-APL-2019-082636

PATIENT
  Age: 66 Year
  Sex: Male

DRUGS (13)
  1. INTERFERON [Concomitant]
     Active Substance: INTERFERON
     Indication: SPLENECTOMY
     Dosage: UNK
     Route: 065
  2. PENTOSTATIN. [Concomitant]
     Active Substance: PENTOSTATIN
     Indication: CYTOPENIA
     Dosage: 4 MILLIGRAM/SQ. METER, EVERY 2 WEEKS
     Route: 065
     Dates: start: 1985
  3. RAMIPRIL. [Suspect]
     Active Substance: RAMIPRIL
     Indication: HYPERTENSION
     Dosage: UNK
     Route: 065
  4. FLAVOPIRIDOL [Suspect]
     Active Substance: ALVOCIDIB
     Dosage: 50 MILLIGRAM/SQ. METER
     Route: 042
  5. FLAVOPIRIDOL [Suspect]
     Active Substance: ALVOCIDIB
     Dosage: 30 MILLIGRAM/SQ. METER
     Route: 040
  6. ALLOPURINOL. [Concomitant]
     Active Substance: ALLOPURINOL
     Indication: PROPHYLAXIS
     Route: 065
  7. PENTOSTATIN. [Concomitant]
     Active Substance: PENTOSTATIN
     Dosage: 2 MILLIGRAM/SQ. METER, EVERY 2 WEEKS
     Route: 065
     Dates: start: 1985
  8. FLAVOPIRIDOL [Suspect]
     Active Substance: ALVOCIDIB
     Indication: HAIRY CELL LEUKAEMIA
     Dosage: 50 MILLIGRAM/SQ. METER
     Route: 040
  9. RITUXIMAB. [Concomitant]
     Active Substance: RITUXIMAB
     Indication: CYTOPENIA
     Dosage: 375 MILLIGRAM/SQ. METER
     Route: 065
     Dates: start: 2005
  10. CLADRIBINE. [Concomitant]
     Active Substance: CLADRIBINE
     Indication: CYTOPENIA
     Dosage: UNK
     Route: 065
  11. RASBURICASE [Concomitant]
     Active Substance: RASBURICASE
     Indication: TUMOUR LYSIS SYNDROME
     Route: 065
  12. DEXAMETHASONE. [Concomitant]
     Active Substance: DEXAMETHASONE
     Indication: PROPHYLAXIS
     Route: 065
  13. DARBEPOETIN ALFA [Concomitant]
     Active Substance: DARBEPOETIN ALFA
     Indication: PRODUCT USED FOR UNKNOWN INDICATION
     Dosage: 300 MICROGRAM
     Route: 065

REACTIONS (1)
  - Hyperkalaemia [Recovered/Resolved]
